FAERS Safety Report 8810815 (Version 2)
Quarter: 2013Q2

REPORT INFORMATION
  Report Type: Report from Study
  Country: CA (occurrence: CA)
  Receive Date: 20120927
  Receipt Date: 20130408
  Transmission Date: 20140414
  Serious: Yes (Hospitalization, Other)
  Sender: FDA-Public Use
  Company Number: CA-JNJFOC-20120908257

PATIENT
  Age: 58 Year
  Sex: Male
  Weight: 86.18 kg

DRUGS (4)
  1. REMICADE [Suspect]
     Indication: COLITIS ULCERATIVE
     Route: 042
     Dates: start: 20130328
  2. REMICADE [Suspect]
     Indication: COLITIS ULCERATIVE
     Route: 042
     Dates: start: 20120825
  3. REMICADE [Suspect]
     Indication: COLITIS ULCERATIVE
     Route: 042
     Dates: start: 20120306
  4. COUMADIN [Concomitant]
     Route: 065

REACTIONS (3)
  - Intestinal haemorrhage [Unknown]
  - Frequent bowel movements [Unknown]
  - Enteritis [Unknown]
